FAERS Safety Report 16286593 (Version 1)
Quarter: 2019Q2

REPORT INFORMATION
  Report Type: Spontaneous
  Country: US (occurrence: US)
  Receive Date: 20190508
  Receipt Date: 20190508
  Transmission Date: 20190711
  Serious: No
  Sender: FDA-Public Use
  Company Number: US-ELI_LILLY_AND_COMPANY-US201904009101

PATIENT
  Age: 43 Year
  Sex: Female

DRUGS (2)
  1. EMGALITY [Suspect]
     Active Substance: GALCANEZUMAB-GNLM
     Indication: PRODUCT USED FOR UNKNOWN INDICATION
     Dosage: UNK UNK, OTHER
     Route: 065
     Dates: start: 20190301
  2. EMGALITY [Suspect]
     Active Substance: GALCANEZUMAB-GNLM
     Dosage: UNK, OTHER
     Route: 065
     Dates: start: 20190401

REACTIONS (8)
  - Feeling cold [Unknown]
  - Paraesthesia [Unknown]
  - Disturbance in attention [Unknown]
  - Cerebral disorder [Unknown]
  - Pain [Unknown]
  - Headache [Unknown]
  - Myalgia [Unknown]
  - Malaise [Unknown]

NARRATIVE: CASE EVENT DATE: 20190406
